FAERS Safety Report 5231120-X (Version None)
Quarter: 2007Q1

REPORT INFORMATION
  Report Type: 
  Country: None (occurrence: None)
  Receive Date: 20070206
  Receipt Date: 20060123
  Transmission Date: 20070707
  Serious: Yes (Other)
  Sender: FDA-Public Use
  Company Number: GB-MERCK-0610GBR00079

PATIENT
  Sex: Female

DRUGS (3)
  1. ZETIA [Suspect]
     Route: 065
  2. ATORVASTATIN CALCIUM [Concomitant]
     Route: 065
  3. RAMIPRIL [Concomitant]
     Route: 065

REACTIONS (1)
  - ANTINEUTROPHIL CYTOPLASMIC ANTIBODY POSITIVE [None]
